FAERS Safety Report 25048427 (Version 1)
Quarter: 2025Q1

REPORT INFORMATION
  Report Type: Spontaneous
  Country: BR (occurrence: BR)
  Receive Date: 20250307
  Receipt Date: 20250307
  Transmission Date: 20250408
  Serious: Yes (Disabling, Other)
  Sender: SUNOVION
  Company Number: BR-SMPA-2025SPA002553

PATIENT

DRUGS (2)
  1. LATUDA [Suspect]
     Active Substance: LURASIDONE HYDROCHLORIDE
     Indication: Muscular weakness
     Dosage: 1 DF, QD
     Route: 048
     Dates: start: 20250221
  2. LATUDA [Suspect]
     Active Substance: LURASIDONE HYDROCHLORIDE
     Indication: Spinal pain

REACTIONS (11)
  - Cardiac disorder [Not Recovered/Not Resolved]
  - Asphyxia [Not Recovered/Not Resolved]
  - Dyskinesia [Not Recovered/Not Resolved]
  - Groin pain [Not Recovered/Not Resolved]
  - Peripheral swelling [Not Recovered/Not Resolved]
  - Lethargy [Not Recovered/Not Resolved]
  - Panic disorder [Unknown]
  - Insomnia [Not Recovered/Not Resolved]
  - Nausea [Recovering/Resolving]
  - Anxiety [Unknown]
  - Off label use [Unknown]
